FAERS Safety Report 5991737-1 (Version None)
Quarter: 2008Q4

REPORT INFORMATION
  Report Type: 
  Country: None (occurrence: None)
  Receive Date: 20081211
  Receipt Date: 20081203
  Transmission Date: 20090506
  Serious: Yes (Other)
  Sender: FDA-Public Use
  Company Number: US-GENENTECH-272779

PATIENT
  Sex: Male
  Weight: 73.016 kg

DRUGS (2)
  1. RITUXIMAB [Suspect]
     Indication: LYMPHOMA
     Dosage: 375 MG/M2, 1/WEEK
     Dates: start: 20081013
  2. BEVACIZUMAB [Suspect]
     Indication: LYMPHOMA
     Dosage: 10 MG/KG, Q2W
     Dates: start: 20081013

REACTIONS (1)
  - WOUND HAEMORRHAGE [None]
